FAERS Safety Report 9704006 (Version 1)
Quarter: 2013Q4

REPORT INFORMATION
  Report Type: Spontaneous
  Country: US (occurrence: US)
  Receive Date: 20131122
  Receipt Date: 20131122
  Transmission Date: 20140711
  Serious: Yes (Hospitalization)
  Sender: FDA-Public Use
  Company Number: US-BAYER-2013-141369

PATIENT
  Age: 36 Year
  Sex: Female
  Weight: 59.86 kg

DRUGS (2)
  1. YAZ [Suspect]
     Route: 048
  2. LORTAB [Concomitant]

REACTIONS (2)
  - Deep vein thrombosis [None]
  - Contraindication to medical treatment [None]
